FAERS Safety Report 24660167 (Version 2)
Quarter: 2024Q4

REPORT INFORMATION
  Report Type: Spontaneous
  Country: AU (occurrence: AU)
  Receive Date: 20241125
  Receipt Date: 20241218
  Transmission Date: 20250114
  Serious: No
  Sender: TOLMAR
  Company Number: AU-TOLMAR, INC.-24AU053680

PATIENT
  Age: 74 Year
  Sex: Male

DRUGS (2)
  1. ELIGARD [Suspect]
     Active Substance: LEUPROLIDE ACETATE
     Indication: Neoplasm malignant
     Dosage: 45 MILLIGRAM, Q 6 MONTH
     Dates: start: 20241028
  2. ELIGARD [Suspect]
     Active Substance: LEUPROLIDE ACETATE
     Indication: Neoplasm malignant
     Dosage: UNK

REACTIONS (4)
  - Product administration error [Unknown]
  - Incorrect dose administered by device [Unknown]
  - Off label use [Unknown]
  - Syringe issue [Unknown]

NARRATIVE: CASE EVENT DATE: 20241028
